FAERS Safety Report 4405621-8 (Version None)
Quarter: 2004Q3

REPORT INFORMATION
  Report Type: 
  Country: None (occurrence: None)
  Receive Date: 20040723
  Receipt Date: 20031021
  Transmission Date: 20050211
  Serious: No
  Sender: FDA-Public Use
  Company Number: US-GLAXOSMITHKLINE-A0430980A

PATIENT
  Age: 72 Year
  Sex: Male

DRUGS (7)
  1. AVANDIA [Suspect]
     Dosage: 4MCG PER DAY
     Route: 048
  2. METFORMIN HCL [Concomitant]
  3. GLYBURIDE [Concomitant]
  4. ZOCOR [Concomitant]
  5. COZAAR [Concomitant]
  6. VITAMIN E [Concomitant]
  7. TENORMIN [Concomitant]

REACTIONS (1)
  - OEDEMA [None]
